FAERS Safety Report 7268595-0 (Version None)
Quarter: 2011Q1

REPORT INFORMATION
  Report Type: 
  Country: None (occurrence: None)
  Receive Date: 20110201
  Receipt Date: 20101216
  Transmission Date: 20110831
  Serious: Yes (Other)
  Sender: FDA-Public Use
  Company Number: US-BAYER-201010036NA

PATIENT
  Sex: Female

DRUGS (5)
  1. YASMIN [Suspect]
     Indication: PRODUCT USED FOR UNKNOWN INDICATION
     Route: 048
  2. LOVENOX [Concomitant]
     Dosage: 120 MG, UNK
  3. LOVENOX [Concomitant]
     Dosage: 40 MG, UNK
  4. COUMADIN [Concomitant]
     Dosage: 7.5 MG, UNK
  5. YAZ [Suspect]
     Indication: PRODUCT USED FOR UNKNOWN INDICATION
     Route: 048

REACTIONS (2)
  - PULMONARY EMBOLISM [None]
  - INJURY [None]
